FAERS Safety Report 7101291-9 (Version None)
Quarter: 2010Q4

REPORT INFORMATION
  Report Type: 
  Country: None (occurrence: None)
  Receive Date: 20101105
  Receipt Date: 20101101
  Transmission Date: 20110411
  Serious: Yes (Death, Hospitalization, Other)
  Sender: FDA-Public Use
  Company Number: TPA2010A05285

PATIENT
  Age: 59 Year
  Sex: Female

DRUGS (17)
  1. ACTOS [Suspect]
     Indication: DIABETES MELLITUS
     Dosage: 45 MG, 1 IN 1 D, PER ORAL
     Route: 048
  2. AMARYL [Concomitant]
  3. B-50 COMPLEX (VITAMIN B) (TABLETS) [Concomitant]
  4. CELEXA [Concomitant]
  5. CRESTOR [Concomitant]
  6. FISH OIL (FISH OIL) [Concomitant]
  7. JANUVIA [Concomitant]
  8. LASIX [Concomitant]
  9. PROCARDIA XL [Concomitant]
  10. PROVENTIL HFA (SALBUTAMOL) [Concomitant]
  11. SPIRIVA [Concomitant]
  12. BRIMONIDINE OPHTHALMIC (BRIMONIDINE TARTRATE) [Concomitant]
  13. FERROUS SULFATE TAB [Concomitant]
  14. LISINOPRIL [Concomitant]
  15. MAGNESIUM OXIDE (MAGNESIUM OXIDE) (TABLETS) [Concomitant]
  16. MULTIVITAMIN [Concomitant]
  17. POTASSIUM CHLORIDE [Concomitant]

REACTIONS (14)
  - ABDOMINAL PAIN [None]
  - ACUTE RESPIRATORY FAILURE [None]
  - CARDIAC ARREST [None]
  - COAGULOPATHY [None]
  - GASTROINTESTINAL HAEMORRHAGE [None]
  - HERNIA [None]
  - LIVER DISORDER [None]
  - METABOLIC ACIDOSIS [None]
  - NAUSEA [None]
  - RENAL FAILURE CHRONIC [None]
  - SHOCK [None]
  - SMALL INTESTINAL OBSTRUCTION [None]
  - VENTRICULAR TACHYCARDIA [None]
  - VOMITING [None]
